FAERS Safety Report 17669844 (Version 3)
Quarter: 2020Q2

REPORT INFORMATION
  Report Type: Spontaneous
  Country: IL (occurrence: IL)
  Receive Date: 20200415
  Receipt Date: 20200605
  Transmission Date: 20200713
  Serious: Yes (Death, Hospitalization)
  Sender: FDA-Public Use
  Company Number: IL-PFIZER INC-2020153127

PATIENT
  Sex: Male

DRUGS (1)
  1. GLASDEGIB [Suspect]
     Active Substance: GLASDEGIB
     Dosage: UNK

REACTIONS (2)
  - Coronavirus test positive [Fatal]
  - Pneumonia [Fatal]
